FAERS Safety Report 8131151-6 (Version None)
Quarter: 2012Q1

REPORT INFORMATION
  Report Type: 
  Country: None (occurrence: None)
  Receive Date: 20120213
  Receipt Date: 20120203
  Transmission Date: 20120608
  Serious: Yes (Hospitalization)
  Sender: FDA-Public Use
  Company Number: US-SANOFI-AVENTIS-2012SA007669

PATIENT
  Sex: Male

DRUGS (3)
  1. HUMALOG [Concomitant]
  2. SOLOSTAR [Suspect]
     Dates: start: 20110301
  3. LANTUS [Suspect]
     Route: 058
     Dates: start: 20110301

REACTIONS (4)
  - IMPAIRED GASTRIC EMPTYING [None]
  - NAUSEA [None]
  - ABDOMINAL PAIN [None]
  - VOMITING [None]
